FAERS Safety Report 8815741 (Version 2)
Quarter: 2015Q2

REPORT INFORMATION
  Report Type: Report from Study
  Country: US (occurrence: US)
  Receive Date: 20120928
  Receipt Date: 20150409
  Transmission Date: 20150821
  Serious: Yes (Death)
  Sender: FDA-Public Use
  Company Number: US-ROCHE-1129665

PATIENT
  Sex: Female

DRUGS (9)
  1. ANZEMET [Concomitant]
     Active Substance: DOLASETRON MESYLATE
     Route: 042
  2. DECADRON [Concomitant]
     Active Substance: DEXAMETHASONE
     Route: 042
  3. TAGAMET [Concomitant]
     Active Substance: CIMETIDINE
     Route: 042
  4. LOVENOX [Concomitant]
     Active Substance: ENOXAPARIN SODIUM
     Route: 058
  5. TYLENOL [Concomitant]
     Active Substance: ACETAMINOPHEN
     Route: 048
  6. HERCEPTIN [Suspect]
     Active Substance: TRASTUZUMAB
     Dosage: MAINTENANCE DOSE?04/SEP/2003, 17/SEP/2003, 25/SEP/2003
     Route: 042
  7. TAXOL [Concomitant]
     Active Substance: PACLITAXEL
     Route: 042
  8. BENADRYL [Concomitant]
     Active Substance: DIPHENHYDRAMINE HYDROCHLORIDE
     Route: 048
  9. HERCEPTIN [Suspect]
     Active Substance: TRASTUZUMAB
     Indication: BREAST CANCER FEMALE
     Dosage: LOADING DOSE
     Route: 042
     Dates: start: 20030821, end: 20030821

REACTIONS (9)
  - Nausea [Unknown]
  - Erythema [Unknown]
  - Fatigue [Unknown]
  - Anxiety [Unknown]
  - Death [Fatal]
  - Cough [Unknown]
  - Pain in extremity [Unknown]
  - Peripheral swelling [Unknown]
  - Dyspnoea [Unknown]
